FAERS Safety Report 8383787-5 (Version None)
Quarter: 2012Q2

REPORT INFORMATION
  Report Type: 
  Country: None (occurrence: None)
  Receive Date: 20120524
  Receipt Date: 20120515
  Transmission Date: 20120825
  Serious: Yes (Hospitalization)
  Sender: FDA-Public Use
  Company Number: US-ASTRAZENECA-2012SE31098

PATIENT
  Age: 49 Year
  Sex: Male
  Weight: 122.5 kg

DRUGS (7)
  1. SEROQUEL [Suspect]
     Route: 048
     Dates: start: 20120201
  2. SEROQUEL [Suspect]
     Route: 048
     Dates: start: 20120201
  3. SEROQUEL [Suspect]
     Indication: INFLAMMATION
     Route: 048
     Dates: start: 20060101, end: 20120201
  4. SEROQUEL [Suspect]
     Route: 048
     Dates: start: 20120201
  5. SEROQUEL [Suspect]
     Indication: ANXIETY
     Route: 048
     Dates: start: 20060101, end: 20120201
  6. SEROQUEL [Suspect]
     Indication: PAIN
     Route: 048
     Dates: start: 20060101, end: 20120201
  7. CLONAZEPAM [Concomitant]
     Indication: ANXIETY

REACTIONS (8)
  - PAIN [None]
  - ARTHROPATHY [None]
  - FALL [None]
  - INSOMNIA [None]
  - OFF LABEL USE [None]
  - INFLAMMATION [None]
  - ANXIETY [None]
  - INTENTIONAL DRUG MISUSE [None]
